FAERS Safety Report 4802176-0 (Version None)
Quarter: 2005Q4

REPORT INFORMATION
  Report Type: 
  Country: None (occurrence: None)
  Receive Date: 20051018
  Receipt Date: 20051006
  Transmission Date: 20060501
  Serious: Yes (Hospitalization, Other)
  Sender: FDA-Public Use
  Company Number: FR-BRISTOL-MYERS SQUIBB COMPANY-13141023

PATIENT
  Age: 75 Year
  Sex: Male

DRUGS (6)
  1. GLUCOPHAGE [Suspect]
     Indication: DIABETES MELLITUS NON-INSULIN-DEPENDENT
     Route: 048
     Dates: start: 20000101
  2. ALDACTONE [Suspect]
     Route: 048
     Dates: start: 20050426, end: 20050625
  3. ENALAPRIL MALEATE AND HYDROCHLOROTHIAZIDE [Suspect]
     Dosage: DURATION OF THERAPY - 1-2 YEARS
     Route: 048
     Dates: start: 20040101
  4. AVANDIA [Suspect]
     Indication: DIABETES MELLITUS NON-INSULIN-DEPENDENT
     Route: 048
     Dates: start: 20050601
  5. KAYEXALATE [Suspect]
     Route: 048
     Dates: start: 20050301
  6. DUPHALAC [Concomitant]
     Route: 048
     Dates: start: 20050301

REACTIONS (4)
  - AMNESTIC DISORDER [None]
  - HEPATIC CIRRHOSIS [None]
  - RENAL FAILURE CHRONIC [None]
  - STEVENS-JOHNSON SYNDROME [None]
